FAERS Safety Report 23651117 (Version 1)
Quarter: 2024Q1

REPORT INFORMATION
  Report Type: Report from Study
  Country: US (occurrence: US)
  Receive Date: 20240320
  Receipt Date: 20240320
  Transmission Date: 20240409
  Serious: Yes (Death)
  Sender: FDA-Public Use
  Company Number: US-Merck Healthcare KGaA-2024008949

PATIENT
  Age: 68 Year
  Sex: Male
  Weight: 73 kg

DRUGS (2)
  1. REBIF [Suspect]
     Active Substance: INTERFERON BETA-1A
     Indication: Multiple sclerosis
     Dosage: 25 YEARS (AS OF 14-MAR-2024)
     Route: 058
  2. REBIF [Suspect]
     Active Substance: INTERFERON BETA-1A
     Route: 058
     Dates: start: 20091111, end: 20240212

REACTIONS (3)
  - Aortic aneurysm [Fatal]
  - Orthostatic hypotension [Fatal]
  - Autonomic nervous system imbalance [Fatal]
